FAERS Safety Report 5148104-2 (Version None)
Quarter: 2006Q4

REPORT INFORMATION
  Report Type: 
  Country: None (occurrence: None)
  Receive Date: 20061110
  Receipt Date: 20060510
  Transmission Date: 20070319
  Serious: Yes (Hospitalization)
  Sender: FDA-Public Use
  Company Number: US-ROCHE-447719

PATIENT
  Age: 41 Year
  Sex: Female

DRUGS (5)
  1. PEGASYS [Suspect]
     Dosage: ROUTE REPORTED AS INJECTABLE.
     Route: 050
     Dates: start: 20050918, end: 20060503
  2. COPEGUS [Suspect]
     Route: 048
     Dates: start: 20050918, end: 20060503
  3. LORAZEPAM [Concomitant]
     Indication: ANXIETY
     Route: 048
  4. LORCET-HD [Concomitant]
     Indication: PAIN
     Route: 048
  5. MORPHINE [Concomitant]
     Indication: ARTHRITIS
     Dosage: DRUG NAME REPORTED AS MORPHINE PATCH. ROUTE REPORTED AS ^EXT^.
     Route: 050

REACTIONS (10)
  - AMNESIA [None]
  - BLINDNESS [None]
  - DEPRESSION [None]
  - HOMICIDAL IDEATION [None]
  - MENTAL DISORDER [None]
  - PARANOIA [None]
  - PSYCHOTIC DISORDER [None]
  - RED BLOOD CELL COUNT DECREASED [None]
  - SUICIDAL IDEATION [None]
  - WHITE BLOOD CELL COUNT DECREASED [None]
